FAERS Safety Report 22640027 (Version 8)
Quarter: 2024Q1

REPORT INFORMATION
  Report Type: Report from Study
  Country: US (occurrence: US)
  Receive Date: 20230626
  Receipt Date: 20240113
  Transmission Date: 20240409
  Serious: No
  Sender: FDA-Public Use
  Company Number: US-002147023-NVSC2023US142999

PATIENT
  Sex: Female

DRUGS (1)
  1. KESIMPTA [Suspect]
     Active Substance: OFATUMUMAB
     Indication: Relapsing multiple sclerosis
     Dosage: 20 MG, QMO
     Route: 058
     Dates: start: 20230620

REACTIONS (11)
  - Pain [Unknown]
  - Hyperhidrosis [Recovering/Resolving]
  - Weight decreased [Unknown]
  - Decreased appetite [Unknown]
  - Tooth disorder [Unknown]
  - Food intolerance [Unknown]
  - Memory impairment [Unknown]
  - Nausea [Recovering/Resolving]
  - Vomiting [Unknown]
  - Chills [Unknown]
  - Product prescribing error [Unknown]
